FAERS Safety Report 19821048 (Version 1)
Quarter: 2021Q3

REPORT INFORMATION
  Report Type: Spontaneous
  Country: JP (occurrence: JP)
  Receive Date: 20210913
  Receipt Date: 20210913
  Transmission Date: 20211014
  Serious: Yes (Life-Threatening, Hospitalization, Other)
  Sender: FDA-Public Use
  Company Number: JP-ACCORD-237838

PATIENT
  Age: 10 Year
  Sex: Female
  Weight: 34 kg

DRUGS (3)
  1. MITOXANTRONE [Suspect]
     Active Substance: MITOXANTRONE HYDROCHLORIDE
     Indication: ACUTE MYELOID LEUKAEMIA
     Dosage: ON DAYS 6?10
  2. CYTARABINE/CYTARABINE HYDROCHLORIDE/CYTARABINE OCFOSFATE [Suspect]
     Active Substance: CYTARABINE
     Indication: ACUTE MYELOID LEUKAEMIA
     Dosage: TRIPLE INTRATHECAL THERAPY ON DAY 6
     Route: 037
  3. ETOPOSIDE. [Suspect]
     Active Substance: ETOPOSIDE
     Indication: ACUTE MYELOID LEUKAEMIA
     Dosage: TRIPLE INTRATHECAL THERAPY ON DAY 6
     Route: 037

REACTIONS (8)
  - Mouth haemorrhage [Recovered/Resolved]
  - Respiratory tract oedema [Recovered/Resolved]
  - Nutritional condition abnormal [Recovered/Resolved]
  - Shock haemorrhagic [Recovered/Resolved]
  - Obstructive airways disorder [Recovered/Resolved]
  - Herpes simplex [Recovered/Resolved]
  - Stomatitis [Recovered/Resolved]
  - Febrile neutropenia [Recovered/Resolved]
